FAERS Safety Report 9332031 (Version 1)
Quarter: 2013Q2

REPORT INFORMATION
  Report Type: Spontaneous
  Country: SZ (occurrence: None)
  Receive Date: 20130603
  Receipt Date: 20130603
  Transmission Date: 20140414
  Serious: Yes (Disabling)
  Sender: FDA-Public Use
  Company Number: IPC201305-000207

PATIENT
  Age: 48 Year
  Sex: Male

DRUGS (1)
  1. HYDROCHLOROTHIAZIDE [Suspect]

REACTIONS (4)
  - Choroidal effusion [None]
  - Detachment of retinal pigment epithelium [None]
  - Retinal detachment [None]
  - Retinal tear [None]
